FAERS Safety Report 6303712-8 (Version None)
Quarter: 2009Q3

REPORT INFORMATION
  Report Type: 
  Country: None (occurrence: None)
  Receive Date: 20090807
  Receipt Date: 20090807
  Transmission Date: 20100115
  Serious: No
  Sender: FDA-Public Use
  Company Number: None

PATIENT
  Age: 91 Year
  Sex: Male
  Weight: 67.586 kg

DRUGS (2)
  1. ZOLPIDEM [Suspect]
     Indication: INSOMNIA
     Dosage: 5MG QHS PO
     Route: 048
     Dates: start: 20090708, end: 20090804
  2. ZOLPIDEM [Suspect]
     Indication: INSOMNIA
     Dosage: 10MG QHS PO
     Route: 048
     Dates: start: 20090805, end: 20090806

REACTIONS (3)
  - DRUG INEFFECTIVE [None]
  - PRODUCT SUBSTITUTION ISSUE [None]
  - RESTLESSNESS [None]
